FAERS Safety Report 7215424-7 (Version None)
Quarter: 2011Q1

REPORT INFORMATION
  Report Type: 
  Country: None (occurrence: None)
  Receive Date: 20110104
  Receipt Date: 20110104
  Transmission Date: 20110831
  Serious: No
  Sender: FDA-Public Use
  Company Number: None

PATIENT
  Sex: Female
  Weight: 83.9154 kg

DRUGS (1)
  1. LIPITOR [Suspect]
     Indication: BLOOD CHOLESTEROL
     Dosage: 1 DAILY

REACTIONS (5)
  - VISION BLURRED [None]
  - OPTIC NEURITIS [None]
  - DIPLOPIA [None]
  - NAUSEA [None]
  - EYELID PTOSIS [None]
